FAERS Safety Report 24794673 (Version 1)
Quarter: 2024Q4

REPORT INFORMATION
  Report Type: Spontaneous
  Country: US (occurrence: US)
  Receive Date: 20241231
  Receipt Date: 20241231
  Transmission Date: 20250115
  Serious: Yes (Other)
  Sender: NOVO NORDISK
  Company Number: US-NOVOPROD-1341497

PATIENT
  Age: 70 Year
  Sex: Male

DRUGS (2)
  1. WEGOVY [Suspect]
     Active Substance: SEMAGLUTIDE
     Indication: Weight control
     Dosage: 0.25 MG, QW
     Route: 058
     Dates: end: 202405
  2. WEGOVY [Suspect]
     Active Substance: SEMAGLUTIDE
     Dosage: UNK
     Route: 058
     Dates: start: 20241216

REACTIONS (3)
  - Surgery [Unknown]
  - Nausea [Unknown]
  - Vomiting [Unknown]

NARRATIVE: CASE EVENT DATE: 20240501
